FAERS Safety Report 21471542 (Version 3)
Quarter: 2023Q2

REPORT INFORMATION
  Report Type: Report from Study
  Country: CN (occurrence: CN)
  Receive Date: 20221018
  Receipt Date: 20230609
  Transmission Date: 20230722
  Serious: Yes (Other)
  Sender: FDA-Public Use
  Company Number: CN-TAKEDA-2022TUS074423

PATIENT
  Age: 64 Year
  Sex: Female
  Weight: 58 kg

DRUGS (6)
  1. VEDOLIZUMAB [Suspect]
     Active Substance: VEDOLIZUMAB
     Indication: Crohn^s disease
     Dosage: 300 MILLIGRAM
     Route: 042
     Dates: start: 20220317
  2. METFORMIN HYDROCHLORIDE [Concomitant]
     Active Substance: METFORMIN HYDROCHLORIDE
     Indication: Diabetes mellitus
     Dosage: 0.5 GRAM, BID
     Route: 048
     Dates: start: 202109
  3. MESALAMINE [Concomitant]
     Active Substance: MESALAMINE
     Indication: Inflammatory bowel disease
     Dosage: 0.5 GRAM, QID
     Route: 048
     Dates: start: 20220307, end: 20220506
  4. Compound glutamine [Concomitant]
     Indication: Inflammatory bowel disease
     Dosage: 240 MILLIGRAM, TID
     Route: 048
     Dates: start: 20220304, end: 20220423
  5. SACCHAROMYCES CEREVISIAE [Concomitant]
     Active Substance: SACCHAROMYCES CEREVISIAE
     Indication: Inflammatory bowel disease
     Dosage: 0.5 GRAM, BID
     Route: 048
     Dates: start: 20220303, end: 20220416
  6. MONTMORILLONITE [Concomitant]
     Active Substance: MONTMORILLONITE
     Indication: Inflammatory bowel disease
     Dosage: 3 GRAM, TID
     Route: 048
     Dates: start: 20220303, end: 20220402

REACTIONS (2)
  - Hypokalaemia [Unknown]
  - Pruritus [Recovered/Resolved]

NARRATIVE: CASE EVENT DATE: 20220401
